FAERS Safety Report 4948880-5 (Version None)
Quarter: 2006Q1

REPORT INFORMATION
  Report Type: 
  Country: None (occurrence: None)
  Receive Date: 20060321
  Receipt Date: 20060309
  Transmission Date: 20060701
  Serious: Yes (Congenital Anomaly)
  Sender: FDA-Public Use
  Company Number: GB-AVENTIS-200612625GDDC

PATIENT
  Sex: Male
  Weight: 2.37 kg

DRUGS (5)
  1. ARAVA [Suspect]
     Indication: RHEUMATOID ARTHRITIS
     Route: 064
     Dates: start: 20041001, end: 20050523
  2. OMEPRAZOLE [Concomitant]
     Dosage: DOSE: UNK
     Route: 064
  3. INDOMETHACIN [Concomitant]
     Indication: RHEUMATOID ARTHRITIS
     Dosage: DOSE: UNK
     Route: 064
     Dates: start: 20050407, end: 20050507
  4. CO-DYDRAMOL [Concomitant]
     Dosage: DOSE: UNK
     Route: 064
  5. FLUCONAZOLE [Concomitant]
     Indication: CANDIDIASIS
     Dosage: DOSE: UNK
     Route: 064

REACTIONS (6)
  - CAESAREAN SECTION [None]
  - CONGENITAL ANOMALY [None]
  - CONGENITAL HAND MALFORMATION [None]
  - DRUG EXPOSURE DURING PREGNANCY [None]
  - PREMATURE BABY [None]
  - UNINTENDED PREGNANCY [None]
